FAERS Safety Report 8466127-2 (Version None)
Quarter: 2012Q2

REPORT INFORMATION
  Report Type: 
  Country: None (occurrence: None)
  Receive Date: 20120626
  Receipt Date: 20120619
  Transmission Date: 20120825
  Serious: Yes (Other)
  Sender: FDA-Public Use
  Company Number: US-CELGENEUS-163-21880-12062797

PATIENT
  Sex: Male
  Weight: 59.338 kg

DRUGS (12)
  1. FUROSEMIDE [Concomitant]
     Dosage: 20 MILLIGRAM
     Route: 048
     Dates: start: 20110829
  2. REVLIMID [Suspect]
     Dosage: 10 MILLIGRAM
     Route: 048
     Dates: start: 20120327
  3. VANCOMYCIN HYCHLORIDE [Concomitant]
     Dosage: 10 GRAM
     Route: 041
     Dates: start: 20120524
  4. NEXIUM [Concomitant]
     Dosage: 40 MILLIGRAM
     Route: 048
     Dates: start: 20120605
  5. VANCOMYCIN HCL [Concomitant]
     Dosage: 750 MILLIGRAM
     Route: 041
     Dates: start: 20120509, end: 20120614
  6. AMICAR [Concomitant]
     Dosage: 1000 MILLIGRAM
     Route: 048
     Dates: start: 20111018
  7. AVELOX [Concomitant]
     Dosage: 400 MILLIGRAM
     Route: 048
     Dates: start: 20120607
  8. VALACYCLOVIR HYDROCHLORIDE [Concomitant]
     Dosage: 500 MILLIGRAM
     Route: 048
     Dates: start: 19900101
  9. ALLOPURINOL [Concomitant]
     Dosage: 300 MILLIGRAM
     Route: 048
     Dates: start: 20110902
  10. ITRACONAZOLE [Concomitant]
     Dosage: 100 MILLIGRAM
     Route: 048
     Dates: start: 20120612
  11. LIDOCAINE-PRILOCAINE [Concomitant]
     Dosage: 2.5 PERCENT
     Route: 061
     Dates: start: 20111021
  12. POTASSIUM CHLORIDE [Concomitant]
     Dosage: 10 MILLIEQUIVALENTS
     Route: 048
     Dates: start: 20110829

REACTIONS (1)
  - SALIVARY GLAND CANCER [None]
